FAERS Safety Report 9857877 (Version 1)
Quarter: 2014Q1

REPORT INFORMATION
  Report Type: Spontaneous
  Country: US (occurrence: US)
  Receive Date: 20140131
  Receipt Date: 20140131
  Transmission Date: 20141002
  Serious: Yes (Other)
  Sender: FDA-Public Use
  Company Number: US-JNJFOC-20140115574

PATIENT
  Age: 71 Year
  Sex: Female
  Weight: 52.16 kg

DRUGS (5)
  1. ROGAINE REGULAR STRENGTH WOMEN (2%) [Suspect]
     Route: 061
  2. ROGAINE REGULAR STRENGTH WOMEN (2%) [Suspect]
     Indication: ALOPECIA
     Route: 061
     Dates: start: 1992
  3. CELEBREX [Concomitant]
     Indication: ARTHRITIS
     Dosage: ONCE FOR 3 YEARS
     Route: 065
  4. SIMVASTATIN [Concomitant]
     Indication: BLOOD CHOLESTEROL
     Dosage: ONCE FOR 1 YEAR
     Route: 065
  5. MICARDIS [Concomitant]
     Indication: BLOOD PRESSURE
     Dosage: ONCE
     Route: 065

REACTIONS (2)
  - Parkinson^s disease [Not Recovered/Not Resolved]
  - Inappropriate schedule of drug administration [Unknown]
